FAERS Safety Report 9605880 (Version 2)
Quarter: 2013Q4

REPORT INFORMATION
  Report Type: Spontaneous
  Country: NO (occurrence: NO)
  Receive Date: 20131008
  Receipt Date: 20131008
  Transmission Date: 20140711
  Serious: Yes (Death, Congenital Anomaly, Other)
  Sender: FDA-Public Use
  Company Number: NO-NICOBRDEVP-2013-03167

PATIENT
  Sex: 0
  Weight: 2 kg

DRUGS (5)
  1. BUPRENORPHINE [Suspect]
     Indication: DRUG DEPENDENCE
     Dosage: 20 MG, UNK
     Route: 064
  2. NICOTINE (UNKNOWN) [Suspect]
     Indication: TOBACCO USER
     Dosage: APPROXIMATELY 30 CIGARETTES/DAY FROM CONCEPTION UNTIL 2ND TRIMESTER; 15 CIGARETTES/DAY FROM 2ND TRIM
     Route: 064
  3. NICOTINE (UNKNOWN) [Suspect]
     Dosage: APPROX 30 CIGARETTES /FROM CONCEPTION
     Route: 064
  4. ALCOHOL [Suspect]
     Indication: PRODUCT USED FOR UNKNOWN INDICATION
     Dosage: 1-3 DRINKS / MONTH UP TO GA 12
     Route: 064
  5. ALCOHOL [Suspect]
     Indication: FOETAL EXPOSURE DURING PREGNANCY

REACTIONS (5)
  - Congenital hydrocephalus [Fatal]
  - Talipes [Unknown]
  - Premature baby [Recovered/Resolved]
  - Low birth weight baby [Recovered/Resolved]
  - Foetal exposure during pregnancy [Recovered/Resolved]
